FAERS Safety Report 11098961 (Version 1)
Quarter: 2015Q2

REPORT INFORMATION
  Report Type: Spontaneous
  Country: JP (occurrence: JP)
  Receive Date: 20150508
  Receipt Date: 20150508
  Transmission Date: 20150821
  Serious: Yes (Death, Hospitalization, Other)
  Sender: FDA-Public Use
  Company Number: JP-ASTRAZENECA-2015SE41793

PATIENT
  Age: 74 Year
  Sex: Male

DRUGS (4)
  1. FORXIGA [Suspect]
     Active Substance: DAPAGLIFLOZIN
     Route: 048
  2. JANUVIA [Concomitant]
     Active Substance: SITAGLIPTIN PHOSPHATE
  3. AZILVA [Concomitant]
     Active Substance: AZILSARTAN KAMEDOXOMIL
     Indication: HYPERTENSION
  4. SUREPOST [Concomitant]
     Active Substance: REPAGLINIDE

REACTIONS (4)
  - Myocardial infarction [Fatal]
  - Cardio-respiratory arrest [Fatal]
  - Drowning [Fatal]
  - Asthenia [Unknown]

NARRATIVE: CASE EVENT DATE: 20150428
